FAERS Safety Report 22778253 (Version 4)
Quarter: 2023Q4

REPORT INFORMATION
  Report Type: Report from Study
  Country: BG (occurrence: BG)
  Receive Date: 20230802
  Receipt Date: 20231220
  Transmission Date: 20240110
  Serious: Yes (Other)
  Sender: FDA-Public Use
  Company Number: BG-AMGEN-BGRNI2021197950

PATIENT
  Age: 63 Year
  Sex: Female
  Weight: 66 kg

DRUGS (22)
  1. BEVACIZUMAB [Suspect]
     Active Substance: BEVACIZUMAB
     Indication: Non-small cell lung cancer metastatic
     Dosage: 1100 MILLIGRAM
     Route: 065
     Dates: start: 20201201
  2. CARBOPLATIN [Suspect]
     Active Substance: CARBOPLATIN
     Indication: Non-small cell lung cancer metastatic
     Dosage: 450 MILLIGRAM
     Route: 065
     Dates: start: 20201201
  3. ATEZOLIZUMAB [Suspect]
     Active Substance: ATEZOLIZUMAB
     Indication: Non-small cell lung cancer metastatic
     Dosage: 1200 MILLIGRAM
     Route: 040
     Dates: start: 20201201
  4. PACLITAXEL [Suspect]
     Active Substance: PACLITAXEL
     Indication: Non-small cell lung cancer metastatic
     Dosage: 360 MILLIGRAM
     Route: 065
     Dates: start: 20201201
  5. XGEVA [Concomitant]
     Active Substance: DENOSUMAB
     Indication: Metastases to bone
     Dosage: UNK, QMO
     Route: 065
     Dates: start: 20201203
  6. ARANESP [Concomitant]
     Active Substance: DARBEPOETIN ALFA
     Dosage: UNK UNK, QD, LAST ADMINISTRATION: 07-NOV-2022
     Route: 065
     Dates: start: 20221107
  7. TORSEMIDE [Concomitant]
     Active Substance: TORSEMIDE
     Dosage: YES
     Dates: start: 2012
  8. FLAGYL [Concomitant]
     Active Substance: METRONIDAZOLE\METRONIDAZOLE HYDROCHLORIDE
     Dosage: YES
     Dates: start: 20210409
  9. EXFORGE [Concomitant]
     Active Substance: AMLODIPINE BESYLATE\VALSARTAN
     Dosage: UNK, QD
     Dates: start: 2012
  10. CALCIUM\VITAMIN D [Concomitant]
     Active Substance: CALCIUM\VITAMIN D
     Dosage: UNK, QD
  11. FEBUXOSTAT [Concomitant]
     Active Substance: FEBUXOSTAT
     Dosage: UNK, QD
     Dates: start: 2010
  12. LEVOTHYROXINE SODIUM [Concomitant]
     Active Substance: LEVOTHYROXINE SODIUM
     Dosage: UNK, QD
     Dates: start: 2009
  13. BISOPROLOL FUMARATE [Concomitant]
     Active Substance: BISOPROLOL FUMARATE
     Dosage: UNK, QD
     Dates: start: 2012
  14. DOCETAXEL [Concomitant]
     Active Substance: DOCETAXEL\DOCETAXEL ANHYDROUS
     Dosage: UNK
     Dates: start: 20220725, end: 20221017
  15. NINTEDANIB [Concomitant]
     Active Substance: NINTEDANIB
     Dosage: UNK
     Dates: start: 20220726, end: 202208
  16. PEMETREXED [Concomitant]
     Active Substance: PEMETREXED
     Dosage: UNK, QD
     Route: 065
     Dates: start: 20221201, end: 20221201
  17. IDAFER [Concomitant]
     Dosage: UNK UNK, QD
     Route: 065
     Dates: start: 20221107, end: 20221107
  18. ERLOTINIB [Concomitant]
     Active Substance: ERLOTINIB
     Dosage: UNK
     Dates: start: 20230327
  19. TRAMADOL [Concomitant]
     Active Substance: TRAMADOL\TRAMADOL HYDROCHLORIDE
     Dosage: UNK
     Dates: start: 20201204, end: 20210214
  20. CEFOPERAZONE [Concomitant]
     Active Substance: CEFOPERAZONE
     Indication: Lithotripsy
     Dosage: UNK UNK, BID
     Dates: start: 20210704, end: 20210709
  21. SODIUM CHLORIDE [Concomitant]
     Active Substance: SODIUM CHLORIDE
     Indication: Lithotripsy
     Dosage: 0.9 PERCENT
     Dates: start: 20210704, end: 20210709
  22. Sopral [Concomitant]
     Indication: Lithotripsy
     Dosage: UNK UNK, BID
     Dates: start: 20210704, end: 20210709

REACTIONS (3)
  - Osteonecrosis of jaw [Not Recovered/Not Resolved]
  - Gingival pain [Recovered/Resolved]
  - Gingival bleeding [Recovered/Resolved]

NARRATIVE: CASE EVENT DATE: 20210310
